FAERS Safety Report 20783639 (Version 8)
Quarter: 2023Q1

REPORT INFORMATION
  Report Type: Report from Study
  Country: US (occurrence: US)
  Receive Date: 20220504
  Receipt Date: 20230307
  Transmission Date: 20230418
  Serious: No
  Sender: FDA-Public Use
  Company Number: US-NOVARTISTESTPH-NVSC2022US102306

PATIENT
  Age: 31 Year
  Sex: Female

DRUGS (1)
  1. KESIMPTA [Suspect]
     Active Substance: OFATUMUMAB
     Indication: Relapsing multiple sclerosis
     Dosage: 20 MG, QMO
     Route: 058
     Dates: start: 20210906

REACTIONS (9)
  - Seasonal allergy [Unknown]
  - Temperature intolerance [Unknown]
  - Flushing [Unknown]
  - Erythema [Unknown]
  - Heart rate increased [Unknown]
  - Weight decreased [Unknown]
  - Gastric infection [Recovered/Resolved]
  - Back pain [Unknown]
  - Sinusitis [Unknown]

NARRATIVE: CASE EVENT DATE: 20220304
